FAERS Safety Report 7433982-4 (Version None)
Quarter: 2011Q2

REPORT INFORMATION
  Report Type: 
  Country: None (occurrence: None)
  Receive Date: 20110425
  Receipt Date: 20110408
  Transmission Date: 20111010
  Serious: Yes (Hospitalization)
  Sender: FDA-Public Use
  Company Number: US-CELGENEUS-TAJPN-11-0245

PATIENT
  Sex: Female
  Weight: 47 kg

DRUGS (4)
  1. PROTECADIN [Concomitant]
     Route: 048
     Dates: start: 20101220
  2. ABRAXANE [Suspect]
     Indication: BREAST CANCER METASTATIC
     Dosage: 370 MILLIGRAM
     Route: 041
     Dates: start: 20101220, end: 20101220
  3. HERCEPTIN [Concomitant]
     Indication: BREAST CANCER METASTATIC
     Dosage: 376 MILLIGRAM
     Route: 041
     Dates: start: 20101220, end: 20101220
  4. THYRADIN [Concomitant]
     Route: 048
     Dates: start: 20101220

REACTIONS (3)
  - WHITE BLOOD CELL COUNT DECREASED [None]
  - STOMATITIS [None]
  - NEUTROPHIL COUNT DECREASED [None]
